FAERS Safety Report 9983084 (Version 1)
Quarter: 2014Q1

REPORT INFORMATION
  Report Type: Report from Study
  Country: US (occurrence: US)
  Receive Date: 20140307
  Receipt Date: 20140307
  Transmission Date: 20141002
  Serious: No
  Sender: FDA-Public Use
  Company Number: US-ABBVIE-13P-163-1179726-00

PATIENT
  Age: 31 Year
  Sex: Male

DRUGS (18)
  1. HUMIRA [Suspect]
     Indication: PSORIATIC ARTHROPATHY
     Dates: start: 20131016, end: 20131016
  2. HUMIRA [Suspect]
     Dates: start: 20131023
  3. HUMIRA [Suspect]
     Dates: start: 20131106
  4. HUMIRA [Suspect]
     Dates: start: 20131120, end: 20131120
  5. SALSALATE [Concomitant]
     Indication: ARTHRITIS
  6. TYLENOL [Concomitant]
     Indication: PRODUCT USED FOR UNKNOWN INDICATION
     Dosage: WITH SALSALATE
  7. DIVALPROEX [Concomitant]
     Indication: DEPRESSION
  8. DIVALPROEX [Concomitant]
     Indication: ANXIETY
  9. DIVALPROEX [Concomitant]
     Indication: ANXIETY
  10. DOXAZOSIN [Concomitant]
     Indication: URINARY TRACT DISORDER
     Dosage: AT BEDTIME
  11. HYDROXAZINE [Concomitant]
     Indication: PRODUCT USED FOR UNKNOWN INDICATION
     Dosage: AS NEEDED
  12. SERTRALINE [Concomitant]
     Indication: DEPRESSION
  13. GABAPENTIN [Concomitant]
     Indication: PAIN
  14. METOPROLOL TARTRATE [Concomitant]
     Indication: BLOOD PRESSURE
  15. AMLODIPINE [Concomitant]
     Indication: BLOOD PRESSURE
  16. LISINOPRIL [Concomitant]
     Indication: PRODUCT USED FOR UNKNOWN INDICATION
  17. RANITIDINE [Concomitant]
     Indication: GASTROOESOPHAGEAL REFLUX DISEASE
  18. OMEPRAZOLE [Concomitant]
     Indication: GASTROOESOPHAGEAL REFLUX DISEASE

REACTIONS (6)
  - Mobility decreased [Recovering/Resolving]
  - Nausea [Recovering/Resolving]
  - Malaise [Recovering/Resolving]
  - Hypoaesthesia [Recovering/Resolving]
  - Back pain [Recovering/Resolving]
  - Drug ineffective [Recovering/Resolving]
